FAERS Safety Report 25135374 (Version 1)
Quarter: 2025Q1

REPORT INFORMATION
  Report Type: Spontaneous
  Country: AT (occurrence: AT)
  Receive Date: 20250328
  Receipt Date: 20250328
  Transmission Date: 20250409
  Serious: Yes (Death)
  Sender: IPSEN BIOPHARMACEUTICALS, INC.
  Company Number: AT-SERVIER-S24013342

PATIENT
  Age: 74 Year
  Sex: Male
  Weight: 84 kg

DRUGS (4)
  1. ONIVYDE [Suspect]
     Active Substance: IRINOTECAN HYDROCHLORIDE
     Indication: Pancreatic carcinoma metastatic
     Dosage: 43 MG/M2, EVERY 2 WEEKS
     Route: 042
     Dates: start: 20240904
  2. OXALIPLATIN [Concomitant]
     Active Substance: OXALIPLATIN
     Indication: Pancreatic carcinoma metastatic
     Dosage: 60 MG/M2, EVERY 2 WEEKS
     Route: 042
     Dates: start: 20240904
  3. FLUOROURACIL [Concomitant]
     Active Substance: FLUOROURACIL
     Indication: Pancreatic carcinoma metastatic
     Dosage: 1920 MG/M2, EVERY 2 WEEKS
     Route: 042
     Dates: start: 20240904
  4. LEUCOVORIN [Concomitant]
     Active Substance: LEUCOVORIN\LEUCOVORIN CALCIUM
     Indication: Pancreatic carcinoma metastatic
     Dosage: 400 MG/M2, EVERY 2 WEEKS
     Route: 042
     Dates: start: 20240904

REACTIONS (5)
  - Cardiac disorder [Fatal]
  - Fatigue [Recovered/Resolved]
  - Nausea [Recovered/Resolved]
  - Asthenia [Recovered/Resolved]
  - Anaemia [Recovering/Resolving]

NARRATIVE: CASE EVENT DATE: 20240101
